FAERS Safety Report 11945146 (Version 1)
Quarter: 2016Q1

REPORT INFORMATION
  Report Type: Spontaneous
  Country: CA (occurrence: CA)
  Receive Date: 20160125
  Receipt Date: 20160125
  Transmission Date: 20160526
  Serious: Yes (Other)
  Sender: FDA-Public Use
  Company Number: CA-TEVA-627777ACC

PATIENT
  Age: 69 Year
  Sex: Female
  Weight: 45.4 kg

DRUGS (1)
  1. TEVA-CLARITHROMYCIN [Suspect]
     Active Substance: CLARITHROMYCIN
     Indication: BRONCHITIS
     Dosage: 1000 MILLIGRAM DAILY;
     Route: 048

REACTIONS (5)
  - Dizziness [Recovered/Resolved]
  - Swollen tongue [Recovered/Resolved]
  - Restlessness [Recovered/Resolved]
  - Eye swelling [Recovered/Resolved]
  - Dysgeusia [Recovered/Resolved]
